FAERS Safety Report 17093089 (Version 1)
Quarter: 2019Q4

REPORT INFORMATION
  Report Type: Report from Study
  Country: None (occurrence: US)
  Receive Date: 20191129
  Receipt Date: 20191129
  Transmission Date: 20200122
  Serious: Yes (Other)
  Sender: FDA-Public Use
  Company Number: US-ABBVIE-19K-163-3173891-00

PATIENT
  Age: 47 Year
  Sex: Female

DRUGS (1)
  1. HUMIRA [Suspect]
     Active Substance: ADALIMUMAB
     Indication: RHEUMATOID ARTHRITIS
     Route: 058
     Dates: start: 20190817

REACTIONS (8)
  - Arthralgia [Not Recovered/Not Resolved]
  - Procedural pain [Unknown]
  - Headache [Unknown]
  - Paranasal sinus discomfort [Unknown]
  - Rhinorrhoea [Unknown]
  - Weight decreased [Unknown]
  - Bone graft [Unknown]
  - Hypersensitivity [Unknown]

NARRATIVE: CASE EVENT DATE: 2019
